FAERS Safety Report 17132431 (Version 1)
Quarter: 2019Q4

REPORT INFORMATION
  Report Type: Report from Study
  Country: CH (occurrence: CH)
  Receive Date: 20191210
  Receipt Date: 20191210
  Transmission Date: 20200122
  Serious: Yes (Other)
  Sender: FDA-Public Use
  Company Number: CH-ROCHE-2487729

PATIENT
  Age: 66 Year

DRUGS (2)
  1. BLINDED IBRUTINIB [Suspect]
     Active Substance: IBRUTINIB
     Indication: B-CELL LYMPHOMA
     Route: 048
     Dates: start: 20170406, end: 20171018
  2. RITUXIMAB. [Suspect]
     Active Substance: RITUXIMAB
     Indication: B-CELL LYMPHOMA
     Route: 041
     Dates: start: 20170420, end: 20170901

REACTIONS (1)
  - Lymphoma transformation [Recovered/Resolved]

NARRATIVE: CASE EVENT DATE: 20171024
